FAERS Safety Report 22293267 (Version 1)
Quarter: 2023Q2

REPORT INFORMATION
  Report Type: Other
  Country: IT (occurrence: IT)
  Receive Date: 20230508
  Receipt Date: 20230508
  Transmission Date: 20230721
  Serious: Yes (Hospitalization)
  Sender: FDA-Public Use
  Company Number: None

PATIENT
  Age: 81 Year
  Sex: Female
  Weight: 60 kg

DRUGS (2)
  1. MEROPENEM [Suspect]
     Active Substance: MEROPENEM
     Indication: Sepsis
     Dosage: 3 GRAM
     Route: 042
     Dates: start: 20230318, end: 20230322
  2. VANCOMYCIN [Suspect]
     Active Substance: VANCOMYCIN
     Indication: Sepsis
     Dosage: 2 GRAM
     Route: 042
     Dates: start: 20230316, end: 20230320

REACTIONS (1)
  - Erythema [None]

NARRATIVE: CASE EVENT DATE: 20230320
